FAERS Safety Report 15315795 (Version 1)
Quarter: 2018Q3

REPORT INFORMATION
  Report Type: Report from Study
  Country: None (occurrence: BR)
  Receive Date: 20180824
  Receipt Date: 20180824
  Transmission Date: 20181010
  Serious: Yes (Other)
  Sender: FDA-Public Use
  Company Number: BR-ABBVIE-18P-020-2403626-00

PATIENT
  Sex: Female
  Weight: 74 kg

DRUGS (10)
  1. SYNTHROID [Suspect]
     Active Substance: LEVOTHYROXINE SODIUM
     Dosage: CURRENTLY IN USE OF SYNTHROID 100 MCG
     Route: 048
  2. CLOMID [Concomitant]
     Active Substance: CLOMIPHENE CITRATE
     Indication: INFERTILITY
  3. GLIFAGE [Concomitant]
     Active Substance: METFORMIN HYDROCHLORIDE
     Indication: INFERTILITY
  4. CLOMID [Concomitant]
     Active Substance: CLOMIPHENE CITRATE
     Indication: OVULATION INDUCTION
  5. SYNTHROID [Suspect]
     Active Substance: LEVOTHYROXINE SODIUM
     Dosage: SYNTHROID 100 MCG IN UTERO AND VIA BREAST MILK
     Route: 048
  6. SYNTHROID [Suspect]
     Active Substance: LEVOTHYROXINE SODIUM
     Dosage: UNTIL THE END OF FIRST TRIMESTER OF HER PREGNANCY SHE HAD REACHED DOSE OF 150 MCG
     Route: 048
  7. GLIFAGE [Concomitant]
     Active Substance: METFORMIN HYDROCHLORIDE
     Indication: POLYCYSTIC OVARIES
     Dosage: FORM STRENGTH: PATIENT THINKS IT WAS 200 MG.
  8. NATELE [Concomitant]
     Active Substance: VITAMINS
     Indication: VITAMIN SUPPLEMENTATION
     Dosage: DURING PREGNANCY
  9. SYNTHROID [Suspect]
     Active Substance: LEVOTHYROXINE SODIUM
     Indication: HYPOTHYROIDISM
     Route: 065
     Dates: start: 1998
  10. FOLIC ACID. [Concomitant]
     Active Substance: FOLIC ACID
     Indication: PREGNANCY
     Dosage: ONLY DURING THE FIRST TRIMESTER OF PREGNANCY

REACTIONS (4)
  - Suppressed lactation [Unknown]
  - Normal newborn [Unknown]
  - Gestational trophoblastic detachment [Unknown]
  - Exposure during pregnancy [Unknown]
